FAERS Safety Report 10837725 (Version 1)
Quarter: 2015Q1

REPORT INFORMATION
  Report Type: Spontaneous
  Country: US (occurrence: None)
  Receive Date: 20150218
  Receipt Date: 20150218
  Transmission Date: 20150721
  Serious: Yes (Disabling, Other)
  Sender: FDA-Public Use
  Company Number: 2015-10666

PATIENT
  Age: 84 Year
  Sex: Female

DRUGS (1)
  1. EYLEA [Suspect]
     Active Substance: AFLIBERCEPT
     Indication: AGE-RELATED MACULAR DEGENERATION
     Route: 031
     Dates: start: 20150111, end: 20150111

REACTIONS (3)
  - Staphylococcal infection [None]
  - Visual acuity reduced [None]
  - Endophthalmitis [None]

NARRATIVE: CASE EVENT DATE: 20150112
